FAERS Safety Report 5195702-6 (Version None)
Quarter: 2006Q4

REPORT INFORMATION
  Report Type: 
  Country: None (occurrence: None)
  Receive Date: 20061226
  Receipt Date: 20061226
  Transmission Date: 20070319
  Serious: No
  Sender: FDA-Public Use
  Company Number: None

PATIENT
  Sex: Male
  Weight: 74.8435 kg

DRUGS (2)
  1. QUININE SULFATE [Suspect]
     Indication: MUSCLE SPASMS
     Dosage: 325 MG 1 AT BEDTIME PO
     Route: 048
     Dates: start: 20061217, end: 20061217
  2. QUININE SULFATE [Suspect]
     Indication: PAIN IN EXTREMITY
     Dosage: 325 MG 1 AT BEDTIME PO
     Route: 048
     Dates: start: 20061217, end: 20061217

REACTIONS (4)
  - HEADACHE [None]
  - MYDRIASIS [None]
  - OCULAR HYPERAEMIA [None]
  - PHOTOPHOBIA [None]
